FAERS Safety Report 4521594-1 (Version None)
Quarter: 2004Q4

REPORT INFORMATION
  Report Type: 
  Country: None (occurrence: None)
  Receive Date: 20041208
  Receipt Date: 20041208
  Transmission Date: 20050328
  Serious: No
  Sender: FDA-Public Use
  Company Number: None

PATIENT
  Age: 23 Year
  Sex: Female
  Weight: 63.5036 kg

DRUGS (2)
  1. ENBREL [Suspect]
     Indication: RHEUMATOID ARTHRITIS
     Dosage: 25 MG   2/WEEK  SUBCUTANEO
     Route: 058
     Dates: start: 20040816, end: 20041115
  2. ARAVA [Concomitant]

REACTIONS (1)
  - OPTIC NEURITIS [None]
